FAERS Safety Report 25269460 (Version 1)
Quarter: 2025Q2

REPORT INFORMATION
  Report Type: Spontaneous
  Country: US (occurrence: US)
  Receive Date: 20250505
  Receipt Date: 20250505
  Transmission Date: 20250717
  Serious: No
  Sender: TAIHO ONCOLOGY INC
  Company Number: US-TAIHOP-2025-004796

PATIENT
  Sex: Male

DRUGS (1)
  1. INQOVI [Suspect]
     Active Substance: CEDAZURIDINE\DECITABINE
     Indication: Deficiency anaemia
     Dosage: DECITABINE 35 MG + CEDAZURIDINE 100 MG.?CYCLE: UNKNOWN.
     Route: 048

REACTIONS (2)
  - Headache [Unknown]
  - Product use in unapproved indication [Unknown]
